FAERS Safety Report 14503532 (Version 1)
Quarter: 2018Q1

REPORT INFORMATION
  Report Type: Spontaneous
  Country: US (occurrence: US)
  Receive Date: 20180208
  Receipt Date: 20180208
  Transmission Date: 20180509
  Serious: No
  Sender: FDA-Public Use
  Company Number: US-JNJFOC-20171134848

PATIENT
  Age: 64 Year
  Sex: Male
  Weight: 104.33 kg

DRUGS (1)
  1. TYLENOL EXTRA STRENGTH [Suspect]
     Active Substance: ACETAMINOPHEN
     Indication: ARTHRALGIA
     Dosage: TOOK FOR ABOUT 2 WEEKS
     Route: 065
     Dates: end: 20171126

REACTIONS (3)
  - Abdominal pain upper [Recovered/Resolved]
  - Drug administration error [Unknown]
  - Expired product administered [Unknown]
